FAERS Safety Report 6428336-3 (Version None)
Quarter: 2009Q4

REPORT INFORMATION
  Report Type: 
  Country: None (occurrence: None)
  Receive Date: 20091105
  Receipt Date: 20091026
  Transmission Date: 20100525
  Serious: Yes (Other)
  Sender: FDA-Public Use
  Company Number: DE-EISAI INC.-E3810-03175-SPO-DE

PATIENT
  Age: 69 Year
  Sex: Female
  Weight: 90 kg

DRUGS (7)
  1. PARIET (RABEPRAZOLE) [Suspect]
     Indication: REFLUX OESOPHAGITIS
     Route: 048
     Dates: start: 20090321, end: 20090328
  2. ATORVASTATIN CALCIUM [Concomitant]
     Dosage: UNKNOWN
  3. CARMEN [Concomitant]
     Dosage: UNKNOWN
  4. NEBILET [Concomitant]
     Dosage: UNKNOWN
  5. CALCIMAGON-D3 [Concomitant]
     Dosage: UNKNOWN
  6. VIGANTOL [Concomitant]
     Dosage: UNKNOWN
  7. LUCOL [Concomitant]
     Dosage: UNKNOWN

REACTIONS (8)
  - BLOOD AMYLASE INCREASED [None]
  - BLOOD CREATININE INCREASED [None]
  - BLOOD PRESSURE FLUCTUATION [None]
  - CHILLS [None]
  - DECREASED APPETITE [None]
  - FATIGUE [None]
  - LIVER FUNCTION TEST ABNORMAL [None]
  - WEIGHT DECREASED [None]
